FAERS Safety Report 4523569-5 (Version None)
Quarter: 2004Q4

REPORT INFORMATION
  Report Type: 
  Country: None (occurrence: None)
  Receive Date: 20041210
  Receipt Date: 20041207
  Transmission Date: 20050328
  Serious: Yes (Hospitalization)
  Sender: FDA-Public Use
  Company Number: FR-ROCHE-388292

PATIENT
  Age: 36 Year
  Sex: Female

DRUGS (1)
  1. NICARDIPINE HCL [Suspect]
     Route: 048
     Dates: start: 20040615, end: 20040615

REACTIONS (3)
  - ABORTION INDUCED [None]
  - CEREBRAL HAEMORRHAGE FOETAL [None]
  - DRUG EXPOSURE DURING PREGNANCY [None]
